FAERS Safety Report 21462518 (Version 1)
Quarter: 2022Q4

REPORT INFORMATION
  Report Type: Spontaneous
  Country: US (occurrence: None)
  Receive Date: 20221014
  Receipt Date: 20221014
  Transmission Date: 20230112
  Serious: No
  Sender: FDA-Public Use
  Company Number: None

PATIENT
  Age: 50 Year
  Sex: Male
  Weight: 60.74 kg

DRUGS (13)
  1. TEMOZOLOMIDE [Suspect]
     Active Substance: TEMOZOLOMIDE
     Indication: Hepatobiliary cancer
     Dosage: FREQUENCY : DAILY;?
     Route: 048
     Dates: start: 20220723
  2. CAPECITABINE [Suspect]
     Active Substance: CAPECITABINE
     Indication: Hepatobiliary cancer
     Dosage: FREQUENCY : TWICE A DAY;?
     Route: 048
     Dates: start: 20220723
  3. ACETAINOPHEN [Concomitant]
  4. CHOLECALCIFEROL WAFTER [Concomitant]
  5. CYANOCOBALAMIN [Concomitant]
  6. FAMOTIDINE [Concomitant]
  7. FLOMAX [Concomitant]
  8. PFIZER-BIONT COVID 19 [Concomitant]
  9. SANDOSTATIN [Concomitant]
  10. SINGULAIR [Concomitant]
  11. TPN ELECTROLYTES [Concomitant]
  12. VITAMIN B12 [Concomitant]
  13. VITAMIN D3 [Concomitant]

REACTIONS (1)
  - Disease complication [None]
